FAERS Safety Report 21301283 (Version 2)
Quarter: 2022Q4

REPORT INFORMATION
  Report Type: Spontaneous
  Country: US (occurrence: None)
  Receive Date: 20220907
  Receipt Date: 20221010
  Transmission Date: 20230113
  Serious: Yes (Hospitalization)
  Sender: FDA-Public Use
  Company Number: US-FARMAPROD-202207-1433

PATIENT
  Age: 77 Year
  Sex: Female

DRUGS (1)
  1. OXERVATE [Suspect]
     Active Substance: CENEGERMIN-BKBJ
     Indication: Neurotrophic keratopathy
     Route: 047
     Dates: start: 20220726

REACTIONS (3)
  - Hospitalisation [Unknown]
  - Product administration error [Unknown]
  - Dizziness [Unknown]

NARRATIVE: CASE EVENT DATE: 20220726
